FAERS Safety Report 7945250-2 (Version None)
Quarter: 2011Q4

REPORT INFORMATION
  Report Type: 
  Country: None (occurrence: None)
  Receive Date: 20111129
  Receipt Date: 20110906
  Transmission Date: 20120403
  Serious: No
  Sender: FDA-Public Use
  Company Number: US-GLAXOSMITHKLINE-A0943454A

PATIENT
  Age: 89 Year
  Sex: Female

DRUGS (5)
  1. SLEEPING PILL [Concomitant]
  2. FLOVENT [Suspect]
     Indication: ASTHMA
     Dosage: 1PUFF TWICE PER DAY
     Route: 055
     Dates: start: 20110801
  3. TAMOXIFEN CITRATE [Concomitant]
  4. THYROID TAB [Concomitant]
  5. UNKNOWN MEDICATION [Concomitant]

REACTIONS (3)
  - BALANCE DISORDER [None]
  - SENSORY DISTURBANCE [None]
  - DIZZINESS [None]
